FAERS Safety Report 7408525-1 (Version None)
Quarter: 2011Q2

REPORT INFORMATION
  Report Type: 
  Country: None (occurrence: None)
  Receive Date: 20110412
  Receipt Date: 20110408
  Transmission Date: 20111010
  Serious: Yes (Other)
  Sender: FDA-Public Use
  Company Number: SG-PFIZER INC-2011078484

PATIENT
  Age: 60 Year
  Sex: Female

DRUGS (1)
  1. GLIPIZIDE [Suspect]
     Route: 048

REACTIONS (1)
  - CARDIAC DISORDER [None]
